FAERS Safety Report 5457233-5 (Version None)
Quarter: 2007Q3

REPORT INFORMATION
  Report Type: 
  Country: None (occurrence: None)
  Receive Date: 20070918
  Receipt Date: 20070117
  Transmission Date: 20080115
  Serious: No
  Sender: FDA-Public Use
  Company Number: US-ASTRAZENECA-2007UW00898

PATIENT
  Age: 57 Year
  Sex: Male
  Weight: 86.2 kg

DRUGS (7)
  1. SEROQUEL [Suspect]
     Indication: BIPOLAR DISORDER
     Route: 048
  2. NASONEX [Concomitant]
  3. PREVACID [Concomitant]
  4. NORVASC [Concomitant]
  5. VALIUM [Concomitant]
  6. PERCOCET [Concomitant]
  7. TRAZODONE HCL [Concomitant]

REACTIONS (4)
  - ABNORMAL DREAMS [None]
  - ANXIETY [None]
  - FEELING ABNORMAL [None]
  - INTENTIONAL OVERDOSE [None]
